FAERS Safety Report 4395078-8 (Version None)
Quarter: 2004Q3

REPORT INFORMATION
  Report Type: 
  Country: None (occurrence: None)
  Receive Date: 20040706
  Receipt Date: 20040625
  Transmission Date: 20050211
  Serious: Yes (Life-Threatening)
  Sender: FDA-Public Use
  Company Number: 8308

PATIENT
  Age: 15 Year
  Sex: Female

DRUGS (4)
  1. METHOTREXATE [Suspect]
     Indication: BONE SARCOMA
     Dosage: 12 G/M2 ONCE IV
     Route: 042
     Dates: start: 19980130, end: 19980130
  2. DEXAMETHASONE [Concomitant]
  3. TROPISETRON [Concomitant]
  4. FRUSEMIDE [Concomitant]

REACTIONS (10)
  - BLOOD LACTATE DEHYDROGENASE INCREASED [None]
  - DIALYSIS [None]
  - DRUG LEVEL DECREASED [None]
  - FLUSHING [None]
  - HYPOTENSION [None]
  - INFUSION RELATED REACTION [None]
  - LOOSE STOOLS [None]
  - RENAL FAILURE [None]
  - TRANSAMINASES INCREASED [None]
  - VOMITING [None]
